FAERS Safety Report 13667741 (Version 3)
Quarter: 2024Q3

REPORT INFORMATION
  Report Type: Spontaneous
  Country: CA (occurrence: CA)
  Receive Date: 20170620
  Receipt Date: 20240920
  Transmission Date: 20241016
  Serious: Yes (Other)
  Sender: ACCORD
  Company Number: CA-ACCORD-052806

PATIENT
  Age: 86 Year
  Sex: Male

DRUGS (3)
  1. MYCOPHENOLATE MOFETIL [Suspect]
     Active Substance: MYCOPHENOLATE MOFETIL
     Indication: Pemphigoid
  2. PREDNISONE [Suspect]
     Active Substance: PREDNISONE
     Indication: Pemphigoid
     Dosage: STARTED WITH 30 MG/D THEN 50 MG/D THEN 60 MG/D THEN SLOWLY TAPERED DOWN TO 20 MG/D
  3. CLOBETASOL [Suspect]
     Active Substance: CLOBETASOL
     Indication: Pemphigoid
     Route: 061

REACTIONS (2)
  - Off label use [Unknown]
  - Kaposi^s sarcoma [Unknown]
